FAERS Safety Report 4631085-5 (Version None)
Quarter: 2005Q2

REPORT INFORMATION
  Report Type: 
  Country: None (occurrence: None)
  Receive Date: 20050406
  Receipt Date: 20050321
  Transmission Date: 20051028
  Serious: Yes (Hospitalization)
  Sender: FDA-Public Use
  Company Number: US97081255A

PATIENT
  Age: 70 Year
  Sex: Female
  Weight: 49 kg

DRUGS (16)
  1. HUMALOG [Suspect]
  2. HUMULIN N [Suspect]
     Indication: DIABETES MELLITUS NON-INSULIN-DEPENDENT
     Dosage: 20 U DAY
  3. HUMULIN R [Suspect]
     Indication: DIABETES MELLITUS NON-INSULIN-DEPENDENT
  4. INDERAL [Concomitant]
  5. LANOXICAPS (DIGOXIN) [Concomitant]
  6. PRINIVIL [Concomitant]
  7. COUMADIN [Concomitant]
  8. LASIX [Concomitant]
  9. MIACALCIN [Concomitant]
  10. CITRACAL (CALCIUM CITRATE) [Concomitant]
  11. SLOW MAG (MAGNESIUM CHLORIDE ANHYDROUS) [Concomitant]
  12. MULTIPLE VITAMIN [Concomitant]
  13. PLAVIX [Concomitant]
  14. PREVACID [Concomitant]
  15. ASPIRIN [Concomitant]
  16. NITROFUR-C [Concomitant]

REACTIONS (12)
  - BLOOD GLUCOSE DECREASED [None]
  - BLOOD GLUCOSE INCREASED [None]
  - DIABETES MELLITUS INADEQUATE CONTROL [None]
  - DIARRHOEA [None]
  - FEELING ABNORMAL [None]
  - HYPERSENSITIVITY [None]
  - INFECTION [None]
  - MYOCARDIAL INFARCTION [None]
  - PERSONALITY CHANGE [None]
  - PRURITUS [None]
  - RASH [None]
  - TREMOR [None]
